FAERS Safety Report 17870537 (Version 8)
Quarter: 2021Q2

REPORT INFORMATION
  Report Type: Spontaneous
  Country: US (occurrence: US)
  Receive Date: 20200608
  Receipt Date: 20210415
  Transmission Date: 20210717
  Serious: Yes (Other)
  Sender: FDA-Public Use
  Company Number: US-PFIZER INC-2020221729

PATIENT
  Age: 79 Year
  Sex: Female
  Weight: 88.45 kg

DRUGS (4)
  1. LYRICA [Suspect]
     Active Substance: PREGABALIN
     Indication: OEDEMA PERIPHERAL
     Dosage: 100 MG, 2X/DAY (TWO 100MG)
     Dates: start: 2020, end: 2020
  2. LYRICA [Suspect]
     Active Substance: PREGABALIN
     Indication: HYPOAESTHESIA
  3. LYRICA [Suspect]
     Active Substance: PREGABALIN
     Indication: PERIPHERAL VENOUS DISEASE
     Dosage: 100 MG, 2X/DAY
     Route: 048
  4. LYRICA [Suspect]
     Active Substance: PREGABALIN
     Indication: NEUROPATHY PERIPHERAL
     Dosage: 100 MG, 1X/DAY
     Route: 048
     Dates: start: 202004, end: 2020

REACTIONS (11)
  - Gait disturbance [Unknown]
  - Weight increased [Unknown]
  - Intentional product use issue [Unknown]
  - Burning sensation [Unknown]
  - Drug ineffective [Unknown]
  - Loss of personal independence in daily activities [Unknown]
  - Hand deformity [Unknown]
  - Diabetes mellitus [Unknown]
  - Pain [Not Recovered/Not Resolved]
  - Peripheral swelling [Not Recovered/Not Resolved]
  - Headache [Unknown]

NARRATIVE: CASE EVENT DATE: 2020
